FAERS Safety Report 8726204 (Version 3)
Quarter: 2013Q3

REPORT INFORMATION
  Report Type: Report from Study
  Country: DE (occurrence: DE)
  Receive Date: 20120816
  Receipt Date: 20130805
  Transmission Date: 20140515
  Serious: Yes (Hospitalization)
  Sender: FDA-Public Use
  Company Number: DE-JNJFOC-20120803649

PATIENT
  Age: 6 Decade
  Sex: Female

DRUGS (7)
  1. SIMPONI [Suspect]
     Indication: RHEUMATOID ARTHRITIS
     Route: 058
     Dates: start: 201010
  2. METHOTREXATE [Suspect]
     Indication: RHEUMATOID ARTHRITIS
  3. TORASEMIDE [Concomitant]
  4. ATACAND [Concomitant]
  5. NOVAMINSULFON [Concomitant]
  6. AMINEURIN [Concomitant]
  7. SALAZOSULFAPYRIDINE [Concomitant]
     Route: 065

REACTIONS (4)
  - Escherichia urinary tract infection [Recovered/Resolved]
  - Pyrexia [Unknown]
  - Thyroid neoplasm [Unknown]
  - Arrhythmia [Unknown]
